FAERS Safety Report 10026367 (Version 2)
Quarter: 2014Q1

REPORT INFORMATION
  Report Type: Spontaneous
  Country: US (occurrence: US)
  Receive Date: 20140321
  Receipt Date: 20140321
  Transmission Date: 20141002
  Serious: No
  Sender: FDA-Public Use
  Company Number: US-ALLERGAN-1307281US

PATIENT
  Sex: Male

DRUGS (1)
  1. LUMIGAN [Suspect]
     Indication: INTRAOCULAR PRESSURE INCREASED
     Dosage: 2 GTT, UNK
     Route: 047

REACTIONS (2)
  - Intraocular pressure increased [Recovering/Resolving]
  - Inappropriate schedule of drug administration [Unknown]
